FAERS Safety Report 6900359-7 (Version None)
Quarter: 2010Q3

REPORT INFORMATION
  Report Type: 
  Country: None (occurrence: None)
  Receive Date: 20100803
  Receipt Date: 20100722
  Transmission Date: 20110219
  Serious: Yes (Other)
  Sender: FDA-Public Use
  Company Number: PHHY2010TW48160

PATIENT
  Sex: Female

DRUGS (1)
  1. ACLASTA [Suspect]
     Indication: OSTEOPOROSIS
     Dosage: 5 MG/100 C.C, ONCE PER YEAR
     Route: 042
     Dates: start: 20100719

REACTIONS (9)
  - DIARRHOEA [None]
  - HEADACHE [None]
  - HYPOAESTHESIA [None]
  - NAUSEA [None]
  - PAIN [None]
  - RASH [None]
  - RESPIRATORY RATE INCREASED [None]
  - SKIN SWELLING [None]
  - VOMITING [None]
